FAERS Safety Report 8603337-5 (Version None)
Quarter: 2012Q3

REPORT INFORMATION
  Report Type: 
  Country: None (occurrence: None)
  Receive Date: 20120817
  Receipt Date: 20120809
  Transmission Date: 20120928
  Serious: Yes (Other)
  Sender: FDA-Public Use
  Company Number: JP-ROXANE LABORATORIES, INC.-2012-RO-01659RO

PATIENT
  Age: 58 Year
  Sex: Female

DRUGS (4)
  1. DEXAMETHASONE [Suspect]
     Dosage: 8 MG
     Route: 042
  2. DOCETAXEL [Suspect]
     Indication: BREAST CANCER
     Route: 042
  3. CYCLOPHOSPHAMIDE [Suspect]
     Indication: BREAST CANCER
     Route: 042
  4. DEXAMETHASONE [Suspect]
     Indication: SUPPORTIVE CARE
     Dosage: 8 MG
     Route: 048

REACTIONS (3)
  - RASH [None]
  - URTICARIA [None]
  - COUGH [None]
